FAERS Safety Report 4659506-2 (Version None)
Quarter: 2005Q2

REPORT INFORMATION
  Report Type: 
  Country: None (occurrence: None)
  Receive Date: 20050511
  Receipt Date: 20050509
  Transmission Date: 20051028
  Serious: Yes (Other)
  Sender: FDA-Public Use
  Company Number: US-MERCK-0505USA01118

PATIENT
  Age: 68 Year
  Sex: Female

DRUGS (3)
  1. FOSAMAX [Suspect]
     Indication: OSTEOPOROSIS
     Route: 048
     Dates: start: 19970101
  2. ARAVA [Concomitant]
     Route: 065
  3. RELAFEN [Concomitant]
     Route: 065

REACTIONS (2)
  - OSTEOMYELITIS [None]
  - OSTEONECROSIS [None]
